FAERS Safety Report 9425836 (Version 2)
Quarter: 2013Q4

REPORT INFORMATION
  Report Type: Spontaneous
  Country: BR (occurrence: BR)
  Receive Date: 20130729
  Receipt Date: 20131017
  Transmission Date: 20140711
  Serious: No
  Sender: FDA-Public Use
  Company Number: BR-ELI_LILLY_AND_COMPANY-BR201307006348

PATIENT
  Sex: Female
  Weight: 51 kg

DRUGS (5)
  1. FORTEO [Suspect]
     Indication: OSTEOPOROSIS
     Dosage: 20 UG, QD
     Route: 058
  2. LANSOPRAZOL [Concomitant]
     Indication: GASTRITIS
     Dosage: 30 MG, UNKNOWN
     Route: 065
  3. SUPRELLE [Concomitant]
     Indication: HORMONE REPLACEMENT THERAPY
     Dosage: UNK, UNKNOWN
     Route: 065
  4. CALCIO + VITAMINA D [Concomitant]
     Indication: OSTEOPOROSIS
     Dosage: UNK, UNKNOWN
     Route: 065
  5. VITAMINA D [Concomitant]
     Indication: OSTEOPOROSIS
     Dosage: 25 GTT, 3/W
     Route: 065

REACTIONS (3)
  - Thyroid neoplasm [Not Recovered/Not Resolved]
  - Nail disorder [Not Recovered/Not Resolved]
  - Flatulence [Not Recovered/Not Resolved]
